FAERS Safety Report 8011536-9 (Version None)
Quarter: 2011Q4

REPORT INFORMATION
  Report Type: 
  Country: None (occurrence: None)
  Receive Date: 20111228
  Receipt Date: 20111221
  Transmission Date: 20120403
  Serious: Yes (Hospitalization, Disabling)
  Sender: FDA-Public Use
  Company Number: DE-B.I. PHARMACEUTICALS,INC./RIDGEFIELD-2011-DE-06858DE

PATIENT
  Sex: Female
  Weight: 60 kg

DRUGS (5)
  1. METOPROLOL SUCCINATE [Concomitant]
     Indication: HYPERTENSION
     Dosage: 0.5 ANZ
     Route: 048
  2. XARELTO [Concomitant]
     Indication: PULMONARY EMBOLISM
     Dosage: 20 MG
     Route: 048
     Dates: start: 20111113, end: 20111115
  3. XARELTO [Concomitant]
     Indication: ATRIAL FIBRILLATION
  4. LEVOTHYROXINE SODIUM [Concomitant]
     Indication: HYPOTHYROIDISM
     Dosage: 100 MCG
     Route: 048
  5. PRADAXA [Suspect]
     Indication: ATRIAL FIBRILLATION
     Dosage: 220 MG
     Route: 048
     Dates: start: 20111116, end: 20111206

REACTIONS (5)
  - MONOPLEGIA [None]
  - BASAL GANGLIA HAEMORRHAGE [None]
  - DYSARTHRIA [None]
  - PARESIS [None]
  - DYSPHAGIA [None]
